FAERS Safety Report 23890800 (Version 1)
Quarter: 2024Q2

REPORT INFORMATION
  Report Type: Report from Study
  Country: US (occurrence: US)
  Receive Date: 20240523
  Receipt Date: 20240523
  Transmission Date: 20240716
  Serious: No
  Sender: FDA-Public Use
  Company Number: US-BoehringerIngelheim-2024-BI-019232

PATIENT
  Age: 84 Year
  Sex: Female

DRUGS (1)
  1. CYLTEZO [Suspect]
     Active Substance: ADALIMUMAB-ADBM
     Indication: Psoriasis
     Route: 058

REACTIONS (3)
  - Drug ineffective [Unknown]
  - Device malfunction [Unknown]
  - Psoriasis [Unknown]
